FAERS Safety Report 8035728-8 (Version None)
Quarter: 2011Q4

REPORT INFORMATION
  Report Type: 
  Country: None (occurrence: None)
  Receive Date: 20111227
  Receipt Date: 20111124
  Transmission Date: 20120403
  Serious: Yes (Other)
  Sender: FDA-Public Use
  Company Number: 2011SP054294

PATIENT
  Age: 17 Year
  Sex: Male

DRUGS (4)
  1. CELESTAMINE TAB [Suspect]
     Indication: NASAL CONGESTION
     Dosage: 1 DF, PO
     Route: 048
     Dates: start: 20111108, end: 20111116
  2. CELESTAMINE TAB [Suspect]
     Indication: NASAL CONGESTION
     Dosage: 1 DF, PO
     Route: 048
     Dates: start: 20111117, end: 20111117
  3. OLOPATADINE HCL [Concomitant]
  4. BAYNAS [Concomitant]

REACTIONS (1)
  - DELUSION [None]
